FAERS Safety Report 5557993-9 (Version None)
Quarter: 2007Q4

REPORT INFORMATION
  Report Type: 
  Country: None (occurrence: None)
  Receive Date: 20071214
  Receipt Date: 20071121
  Transmission Date: 20080405
  Serious: Yes (Disabling)
  Sender: FDA-Public Use
  Company Number: GB-RANBAXY-2007RR-11651

PATIENT

DRUGS (36)
  1. AMIODARONE HCL [Suspect]
     Indication: ARRHYTHMIA
     Dosage: 200 MG, UNK
     Route: 048
  2. SIMVASTATIN [Suspect]
     Indication: HYPERCHOLESTEROLAEMIA
     Dosage: 40 MG, QD
     Route: 048
     Dates: start: 20070719, end: 20070804
  3. ALENDRONIC ACID 70MG TABLETS [Concomitant]
     Dosage: 70 MG, 1/WEEK
     Dates: start: 20070606
  4. ALENDRONIC ACID 70MG TABLETS [Concomitant]
     Dosage: 70 MG, 1/WEEK
     Dates: start: 20070412
  5. ALENDRONIC ACID 70MG TABLETS [Concomitant]
     Dosage: 70 MG, 1/WEEK
     Dates: start: 20070214
  6. ALENDRONIC ACID 70MG TABLETS [Concomitant]
     Dosage: 70 MG, 1/WEEK
     Dates: start: 20070723
  7. AMLODIPINE [Concomitant]
     Dosage: 10 MG, QD
     Dates: start: 20070606
  8. AMLODIPINE [Concomitant]
     Dosage: 10 MG, QD
     Dates: start: 20070214
  9. AMLODIPINE [Concomitant]
     Dosage: 10 MG, QD
     Dates: start: 20070418
  10. DISPERSIBLE ASPIRIN 75MG TABLETS BP [Concomitant]
     Dosage: 75 MG, UNK
     Dates: start: 20070606
  11. DISPERSIBLE ASPIRIN 75MG TABLETS BP [Concomitant]
     Dosage: 75 MG, UNK
     Dates: start: 20070808
  12. DISPERSIBLE ASPIRIN 75MG TABLETS BP [Concomitant]
     Dosage: 75 MG, UNK
     Dates: start: 20070214
  13. DISPERSIBLE ASPIRIN 75MG TABLETS BP [Concomitant]
     Dosage: 75 MG, UNK
     Dates: start: 20070418
  14. CALCICHEW [Concomitant]
     Dosage: 500 MG, BID
     Dates: start: 20070606
  15. CALCICHEW [Concomitant]
     Dosage: 500 MG, BID
     Dates: start: 20070808
  16. CALCICHEW [Concomitant]
     Dosage: 500 MG, BID
     Dates: start: 20070214
  17. CALCICHEW [Concomitant]
     Dosage: 500 MG, BID
     Dates: start: 20070418
  18. CITALOPRAM HYDROBROMIDE [Concomitant]
     Dosage: 10 MG, QD
     Dates: start: 20070606
  19. CITALOPRAM HYDROBROMIDE [Concomitant]
     Dosage: 10 MG, QD
     Dates: start: 20070418
  20. CLOPIDOGREL [Concomitant]
     Dosage: 75 MG, QD
     Dates: start: 20070809
  21. CLOPIDOGREL [Concomitant]
     Dosage: 75 MG, QD
     Dates: start: 20070625
  22. FERROUS SULPHATE 200MG TABLETS [Concomitant]
     Dosage: 200 MG, BID
     Dates: start: 20070807
  23. FUROSEMIDE TABLETS BP 40MG [Concomitant]
     Dosage: 40 MG, QD
     Dates: start: 20070604
  24. FUROSEMIDE TABLETS BP 40MG [Concomitant]
     Dosage: 40 MG, UNK
     Dates: start: 20070809
  25. GAVISCON [Concomitant]
     Dosage: 500 ML, PRN
     Dates: start: 20070807
  26. LOSARTAN POTASSIUM [Concomitant]
     Dosage: 50 MG, QD
     Dates: start: 20070606
  27. LOSARTAN POTASSIUM [Concomitant]
     Dosage: 50 MG, QD
     Dates: start: 20070214
  28. LOSARTAN POTASSIUM [Concomitant]
     Dosage: 50 MG, QD
     Dates: start: 20070418
  29. MOVICOL [Concomitant]
     Dosage: UNK
     Dates: start: 20070623
  30. SENNA [Concomitant]
     Dosage: 7.5 MG, UNK
     Dates: start: 20070705
  31. SENNA [Concomitant]
     Dosage: 7.5 MG, UNK
     Dates: start: 20070820
  32. SIMVASTATIN [Concomitant]
     Dosage: 40 MG, UNK
     Dates: start: 20070719
  33. FLOMAX [Concomitant]
     Dosage: 400 UG, QD
     Dates: start: 20070606
  34. FLOMAX [Concomitant]
     Dosage: 400 UG, UNK
     Dates: start: 20070808
  35. FLOMAX [Concomitant]
     Dosage: 400 UG, UNK
     Dates: start: 20070214
  36. FLOMAX [Concomitant]
     Dosage: 400 UG, UNK
     Dates: start: 20070418

REACTIONS (3)
  - CONDITION AGGRAVATED [None]
  - DRUG INTERACTION [None]
  - MUSCULAR WEAKNESS [None]
